FAERS Safety Report 8145150-1 (Version None)
Quarter: 2012Q1

REPORT INFORMATION
  Report Type: 
  Country: None (occurrence: None)
  Receive Date: 20120217
  Receipt Date: 20120214
  Transmission Date: 20120608
  Serious: Yes (Life-Threatening, Hospitalization, Other)
  Sender: FDA-Public Use
  Company Number: PHFR2010IE01201

PATIENT
  Sex: Male

DRUGS (8)
  1. CLOZARIL [Suspect]
     Indication: SCHIZOPHRENIA
     Dosage: 25 MG MANE, 75 MG NOCTE
     Route: 048
     Dates: start: 20050113, end: 20080601
  2. ALBUTEROL SULFATE AUTOHALER [Concomitant]
     Indication: ASTHMA
  3. VENLAFAXINE [Concomitant]
     Dosage: 225 MG/DAY
     Route: 048
  4. CLOZARIL [Suspect]
     Dosage: 150 MG, BID
     Route: 048
     Dates: start: 20080613
  5. CHEMOTHERAPEUTICS NOS [Concomitant]
     Indication: OESOPHAGEAL CARCINOMA
  6. CLOZARIL [Suspect]
     Route: 048
  7. CLOZARIL [Suspect]
     Dosage: 250 MG/DAY
     Route: 048
  8. VALPROIC ACID [Concomitant]
     Route: 048

REACTIONS (17)
  - WEIGHT DECREASED [None]
  - HAEMOGLOBIN DECREASED [None]
  - HERPES ZOSTER [None]
  - OESOPHAGEAL CARCINOMA [None]
  - RENAL IMPAIRMENT [None]
  - SINUS TACHYCARDIA [None]
  - KIDNEY INFECTION [None]
  - TINNITUS [None]
  - HEADACHE [None]
  - ASTHENIA [None]
  - OESOPHAGEAL STENOSIS [None]
  - DECREASED APPETITE [None]
  - DIZZINESS [None]
  - DYSPHAGIA [None]
  - SYNCOPE [None]
  - ANAEMIA [None]
  - BALANCE DISORDER [None]
